FAERS Safety Report 9833939 (Version 1)
Quarter: 2014Q1

REPORT INFORMATION
  Report Type: Spontaneous
  Country: US (occurrence: US)
  Receive Date: 20140122
  Receipt Date: 20140122
  Transmission Date: 20141002
  Serious: No
  Sender: FDA-Public Use
  Company Number: US-BIOGENIDEC-2014BI006104

PATIENT
  Age: 53 Year
  Sex: Female

DRUGS (12)
  1. TECFIDERA [Suspect]
     Indication: MULTIPLE SCLEROSIS
     Route: 048
     Dates: start: 20140115, end: 20140115
  2. TECFIDERA [Suspect]
     Indication: MULTIPLE SCLEROSIS
     Dates: start: 20140118
  3. ALENDRONATE SODIUM [Concomitant]
  4. BUPROPION HCL [Concomitant]
  5. CALCIUM-MAGNESIUM-ZINC [Concomitant]
  6. CHLORTHALIDONE [Concomitant]
  7. NEURONTIN [Concomitant]
  8. POTASSIUM BICARBONATE [Concomitant]
  9. HYDROCODONE [Concomitant]
  10. ZOLOFT [Concomitant]
  11. CHLORTHALIDONE [Concomitant]
  12. ESTRADIOL [Concomitant]

REACTIONS (2)
  - Incorrect dose administered [Unknown]
  - Flushing [Unknown]
